FAERS Safety Report 12094878 (Version 1)
Quarter: 2016Q1

REPORT INFORMATION
  Report Type: Spontaneous
  Country: SE (occurrence: SE)
  Receive Date: 20160219
  Receipt Date: 20160219
  Transmission Date: 20160526
  Serious: Yes (Hospitalization)
  Sender: FDA-Public Use
  Company Number: SE-PERNIX THERAPEUTICS-2015PT000142

PATIENT

DRUGS (20)
  1. ALDARA [Concomitant]
     Active Substance: IMIQUIMOD
  2. ATORVASTATIN [Concomitant]
     Active Substance: ATORVASTATIN
  3. CYCLOSPORINE. [Concomitant]
     Active Substance: CYCLOSPORINE
  4. TRADOLAN [Concomitant]
     Active Substance: TRAMADOL
  5. DOXAZOSIN [Concomitant]
     Active Substance: DOXAZOSIN\DOXAZOSIN MESYLATE
  6. MIMPARA [Concomitant]
     Active Substance: CINACALCET HYDROCHLORIDE
  7. LOPERAMIDE HYDROCHLORIDE. [Concomitant]
     Active Substance: LOPERAMIDE HYDROCHLORIDE
  8. IMOVANE [Concomitant]
     Active Substance: ZOPICLONE
  9. NITROGLYCERIN. [Concomitant]
     Active Substance: NITROGLYCERIN
  10. OMEPRAZOLE. [Concomitant]
     Active Substance: OMEPRAZOLE
  11. PREDNISOLONE. [Concomitant]
     Active Substance: PREDNISOLONE
  12. CEDAX [Suspect]
     Active Substance: CEFTIBUTEN DIHYDRATE
     Indication: ANTIBIOTIC PROPHYLAXIS
     Dosage: ACCORDING TO A SCHEME
     Dates: end: 201402
  13. SELEXID /00445302/ [Suspect]
     Active Substance: AMDINOCILLIN PIVOXIL HYDROCHLORIDE
     Indication: ANTIBIOTIC PROPHYLAXIS
     Dosage: ACCORDING TO A SCHEME
     Dates: end: 201402
  14. FOSAMAX [Concomitant]
     Active Substance: ALENDRONATE SODIUM
  15. CANODERM [Concomitant]
  16. ALLOPURINOL BERK [Concomitant]
  17. FURIX [Concomitant]
     Active Substance: FUROSEMIDE
  18. SPIRONOLACTONE. [Concomitant]
     Active Substance: SPIRONOLACTONE
  19. IMODIUM [Concomitant]
     Active Substance: LOPERAMIDE HYDROCHLORIDE
  20. PANODIL [Concomitant]
     Active Substance: ACETAMINOPHEN

REACTIONS (6)
  - General physical health deterioration [None]
  - C-reactive protein increased [None]
  - Dehydration [None]
  - Laboratory test abnormal [None]
  - Diarrhoea [Recovered/Resolved]
  - Pyrexia [None]

NARRATIVE: CASE EVENT DATE: 20140211
